FAERS Safety Report 10232289 (Version 1)
Quarter: 2014Q2

REPORT INFORMATION
  Report Type: Spontaneous
  Country: GB (occurrence: GB)
  Receive Date: 20140612
  Receipt Date: 20140612
  Transmission Date: 20141212
  Serious: Yes (Other)
  Sender: FDA-Public Use
  Company Number: GB-DRREDDYS-GER/UKI/14/0041008

PATIENT
  Sex: Female

DRUGS (3)
  1. GEMCITABINE [Suspect]
     Indication: OVARIAN CANCER
  2. CARBOPLATIN [Suspect]
     Indication: OVARIAN CANCER
  3. BEVACIZUMAB [Suspect]
     Indication: OVARIAN CANCER

REACTIONS (1)
  - Hypersensitivity [Unknown]
